FAERS Safety Report 8611928-0 (Version None)
Quarter: 2012Q3

REPORT INFORMATION
  Report Type: 
  Country: None (occurrence: None)
  Receive Date: 20120822
  Receipt Date: 20110811
  Transmission Date: 20120928
  Serious: Yes (Death, Hospitalization)
  Sender: FDA-Public Use
  Company Number: HU-ROCHE-696210

PATIENT
  Sex: Male
  Weight: 74 kg

DRUGS (43)
  1. GEMCITABINE HYDROCHLORIDE [Suspect]
     Dosage: LAST DOSE PRIOR TO SAE: 01 APRIL 2010
     Route: 042
  2. CARBOPLATIN [Suspect]
     Dosage: LAST DOSE PRIOR TO EVENT ON 25 JANUARY 2010.
     Route: 042
  3. FLUTICASONE PROPIONATE/SALMETEROL [Concomitant]
  4. AUGMENTIN '500' [Concomitant]
     Indication: BRONCHOPNEUMONIA
     Dates: start: 20091020, end: 20091026
  5. KALIUM-R [Concomitant]
     Dates: start: 20100202, end: 20100407
  6. SINECOD [Concomitant]
     Indication: BRONCHOSCOPY
     Dates: start: 20091022, end: 20091022
  7. ONDANSETRON [Concomitant]
     Indication: PROPHYLAXIS
  8. BISOPROLOL FUMARATE [Concomitant]
     Indication: PALPITATIONS
  9. PEGFILGRASTIM [Concomitant]
     Indication: PROPHYLAXIS
     Dates: start: 20100217, end: 20100407
  10. GEMCITABINE HYDROCHLORIDE [Suspect]
     Route: 042
  11. GEMCITABINE HYDROCHLORIDE [Suspect]
     Dosage: FREQ: DAY 1 + 8 EVERY 3 WEEKS
     Route: 042
  12. CARBOPLATIN [Suspect]
     Indication: NON-SMALL CELL LUNG CANCER
     Dosage: FORM: INFUSION;
     Route: 042
  13. CARBOPLATIN [Suspect]
     Dosage: LAST DOSE PRIOR TO SAE: 23 MARCH 2010, FREQUENCY: 1XDAILY
     Route: 042
  14. LIDOCAINE [Concomitant]
     Indication: BRONCHOSCOPY
     Dates: start: 20091022, end: 20091022
  15. AVASTIN [Suspect]
     Indication: NON-SMALL CELL LUNG CANCER
     Dosage: FREQUENCY: 1X, FORM INFUSION;
     Route: 042
  16. GEMCITABINE HYDROCHLORIDE [Suspect]
     Dosage: LAST DOSE OF IV GEMCITABINE PRIOR TO EVENT ON 25 JANUARY 2010.
     Route: 042
  17. CIPROFLOXACIN HYDROCHLORIDE [Concomitant]
     Indication: BRONCHOPNEUMONIA
     Dates: start: 20091020, end: 20091024
  18. NEUPOGEN [Concomitant]
     Indication: GRANULOCYTOPENIA
     Dates: start: 20100201, end: 20100203
  19. SPIRIVA [Concomitant]
  20. KALIUM-R [Concomitant]
     Indication: PROPHYLAXIS
     Dates: start: 20091020, end: 20091026
  21. EPREX [Concomitant]
     Indication: ANAEMIA
     Dates: start: 20091127, end: 20091220
  22. NEORECORMON [Concomitant]
  23. HYDROMORPHONE HCL [Concomitant]
     Indication: CHEST PAIN
     Dates: start: 20100104, end: 20100407
  24. BERODUAL [Concomitant]
     Indication: CHRONIC OBSTRUCTIVE PULMONARY DISEASE
     Dosage: DRUG - BERODUAL INHALATION
     Dates: start: 20091020, end: 20091029
  25. AVASTIN [Suspect]
     Dosage: FREQUENCY AS PER PROTOCOL, LAST DOSE OF PRIOR TO EVENT ON 25 JANUARY 2010. FORM INFUSION
     Route: 042
  26. GEMCITABINE HYDROCHLORIDE [Suspect]
     Dosage: FREQ: DAY 1 + 8 EVERY 3 WEEKS
     Route: 042
  27. FLUTICASONE PROPIONATE/SALMETEROL [Concomitant]
     Dosage: DRUG REPORTED AS SERETIDE 500/50; DOSE REPORTED AS 1000 MG/ 100 MG, 500/ 50
     Dates: start: 20091104, end: 20100407
  28. NEORECORMON [Concomitant]
     Indication: ANAEMIA
     Dates: start: 20091215, end: 20100407
  29. AVASTIN [Suspect]
     Dosage: LAST DOSE PRIOR TO SAE: 16 FEBRUARY 2010. LAST DOSE PRIOR TO LEUKOPENIA WAS 23 MAR 2010
     Route: 042
  30. AUGMENTIN '500' [Concomitant]
     Dates: start: 20100322, end: 20100323
  31. KALIUM-R [Concomitant]
     Dosage: INDICATION: PROPHYLAXIS OF HYPOKALEMIA CAUSED BY USING OF MEDROL
     Dates: start: 20091116, end: 20091117
  32. MEDROL [Concomitant]
     Indication: GRANULOCYTOPENIA
     Dosage: INDICATION: COPD ACUTE EXACERBATION
     Dates: start: 20091020, end: 20091029
  33. MEDROL [Concomitant]
     Dates: start: 20091116, end: 20091117
  34. NEUPOGEN [Concomitant]
  35. GEMCITABINE HYDROCHLORIDE [Suspect]
     Indication: NON-SMALL CELL LUNG CANCER
     Dosage: FORM INFUSION, ON DAY 1 AND DAY 8; FREQUENCY: 1XDAILY;
     Route: 042
     Dates: start: 20091109, end: 20091117
  36. GEMCITABINE HYDROCHLORIDE [Suspect]
     Dosage: FREQUENCY: 2XEVERY THREE WEEK, FORM: INFUSION
     Route: 042
  37. CARBOPLATIN [Suspect]
     Route: 042
  38. MEDROL [Concomitant]
     Dosage: INDICATION: THROMBOCYTOPENIA
     Dates: start: 20100202, end: 20100407
  39. BISOPROLOL FUMARATE [Concomitant]
     Dates: start: 20100104, end: 20100407
  40. AVASTIN [Suspect]
     Dosage: LAST DOSE PRIOR TO SAE: 16 FEBRUARY 2010,INFUSION, FREQUENCY: 1XDAILY
     Route: 042
  41. SPIRIVA [Concomitant]
     Indication: CHRONIC OBSTRUCTIVE PULMONARY DISEASE
     Dates: start: 20091104, end: 20100407
  42. MEGESIN [Concomitant]
     Indication: WEIGHT DECREASED
     Dosage: INDICATION: LOSS OF WEIGHT (CACHEXIA)
     Dates: start: 20091109, end: 20100407
  43. MEGESIN [Concomitant]

REACTIONS (7)
  - ANAEMIA [None]
  - GRANULOCYTOPENIA [None]
  - PNEUMONIA [None]
  - INFECTIOUS PLEURAL EFFUSION [None]
  - THROMBOCYTOPENIA [None]
  - NEUTROPENIA [None]
  - LEUKOPENIA [None]
